FAERS Safety Report 19515915 (Version 1)
Quarter: 2021Q3

REPORT INFORMATION
  Report Type: Spontaneous
  Country: DE (occurrence: DE)
  Receive Date: 20210709
  Receipt Date: 20210709
  Transmission Date: 20211014
  Serious: Yes (Hospitalization)
  Sender: FDA-Public Use
  Company Number: NVSC2021DE146699

PATIENT
  Age: 27 Year
  Sex: Male
  Weight: 132 kg

DRUGS (3)
  1. PANTOPRAZOLE [Concomitant]
     Active Substance: PANTOPRAZOLE
     Indication: PRODUCT USED FOR UNKNOWN INDICATION
     Dosage: 20 MG, QD (20 MG, 1?0?0?0, RETARD?TABLETTEN)
     Route: 048
  2. BISOPROLOL [Suspect]
     Active Substance: BISOPROLOL
     Indication: PRODUCT USED FOR UNKNOWN INDICATION
     Dosage: 2.5 MG, QD (2.5 MG, 1?0?0?0, TABLETTEN)
     Route: 048
  3. IBUPROFEN. [Suspect]
     Active Substance: IBUPROFEN
     Indication: PRODUCT USED FOR UNKNOWN INDICATION
     Dosage: 600 MG, BID (600 MG, 1?0?1?0, TABLETTEN)
     Route: 048

REACTIONS (4)
  - Palpitations [Unknown]
  - Dyspnoea [Unknown]
  - Chest pain [Unknown]
  - Arrhythmia [Unknown]
